FAERS Safety Report 13994436 (Version 1)
Quarter: 2017Q3

REPORT INFORMATION
  Report Type: Spontaneous
  Country: US (occurrence: None)
  Receive Date: 20170920
  Receipt Date: 20170920
  Transmission Date: 20171128
  Serious: Yes (Death, Hospitalization)
  Sender: FDA-Public Use
  Company Number: None

PATIENT
  Age: 71 Year
  Sex: Male
  Weight: 67.9 kg

DRUGS (18)
  1. XANAX [Concomitant]
     Active Substance: ALPRAZOLAM
  2. LANOXIN [Concomitant]
     Active Substance: DIGOXIN
  3. POLYETHYLENE GLYCOL 3350 (MIRALAX GLYCOLAX) [Concomitant]
  4. AMIODARONE (CORDARONE) [Concomitant]
  5. IPRATROPIUM-ALBUTEROL (DUONEB) [Concomitant]
  6. SODIUM CHLORIDE. [Concomitant]
     Active Substance: SODIUM CHLORIDE
  7. DECITABINE. [Suspect]
     Active Substance: DECITABINE
     Indication: NON-SMALL CELL LUNG CANCER STAGE IV
     Dosage: 2 TIMES A WEEK ON CONSECUTIVE DAYS
     Route: 048
  8. MEGESTROL (MEGACE) [Concomitant]
  9. INSULIN REGULAR HUMAN (NOVOLIN R, HUMULIN R) [Concomitant]
  10. SYNTHROID [Concomitant]
     Active Substance: LEVOTHYROXINE SODIUM
  11. HYDROMORPHONE PCA [Concomitant]
  12. ZYPREXA [Concomitant]
     Active Substance: OLANZAPINE
  13. ALBUTEROL (PROVENTIL) [Concomitant]
  14. NEURONTIN [Concomitant]
     Active Substance: GABAPENTIN
  15. ATIVAN [Concomitant]
     Active Substance: LORAZEPAM
  16. TETRAHYDROURIDINE [Suspect]
     Active Substance: TETRAHYDROURIDINE
     Indication: NON-SMALL CELL LUNG CANCER STAGE IV
     Dosage: 2 TIMES A WEEK ON CONECUTIVE DAYS
     Route: 048
  17. CELEXA [Concomitant]
     Active Substance: CITALOPRAM HYDROBROMIDE
  18. OPDIVO [Suspect]
     Active Substance: NIVOLUMAB
     Indication: NON-SMALL CELL LUNG CANCER STAGE IV
     Route: 042
     Dates: start: 20170726, end: 20170810

REACTIONS (3)
  - Supraventricular tachycardia [None]
  - Disease progression [None]
  - Dehydration [None]

NARRATIVE: CASE EVENT DATE: 20170813
